FAERS Safety Report 10587874 (Version 1)
Quarter: 2014Q4

REPORT INFORMATION
  Report Type: Spontaneous
  Country: TR (occurrence: TR)
  Receive Date: 20141117
  Receipt Date: 20141117
  Transmission Date: 20150529
  Serious: Yes (Death, Other)
  Sender: FDA-Public Use
  Company Number: TR-BAXTER-2014BAX066965

PATIENT
  Age: 14 Year
  Sex: Male

DRUGS (3)
  1. VINCRISTIN [Suspect]
     Active Substance: VINCRISTINE
     Indication: RHABDOMYOSARCOMA
     Route: 065
  2. ENDOXAN 1G. IV [Suspect]
     Active Substance: CYCLOPHOSPHAMIDE
     Indication: RHABDOMYOSARCOMA
     Route: 065
  3. TOPOTECAN [Suspect]
     Active Substance: TOPOTECAN\TOPOTECAN HYDROCHLORIDE
     Indication: RHABDOMYOSARCOMA
     Route: 065

REACTIONS (4)
  - Death [Fatal]
  - Haemorrhagic infarction [Not Recovered/Not Resolved]
  - Metastases to central nervous system [Not Recovered/Not Resolved]
  - Alveolar rhabdomyosarcoma [Not Recovered/Not Resolved]
